FAERS Safety Report 9950903 (Version 1)
Quarter: 2014Q1

REPORT INFORMATION
  Report Type: Report from Study
  Country: US (occurrence: US)
  Receive Date: 20140304
  Receipt Date: 20140304
  Transmission Date: 20141002
  Serious: No
  Sender: FDA-Public Use
  Company Number: US-ABBVIE-13P-163-1068523-00

PATIENT
  Age: 20 Year
  Sex: Female

DRUGS (5)
  1. HUMIRA [Suspect]
     Indication: CROHN^S DISEASE
     Dates: start: 20130207
  2. AZATHIOPRINE [Concomitant]
     Indication: CROHN^S DISEASE
  3. LEVOCETIRIZINE [Concomitant]
     Indication: HYPERSENSITIVITY
  4. MONTELUKAST [Concomitant]
     Indication: HYPERSENSITIVITY
  5. SYEDA BIRTH CONTROL PILL [Concomitant]
     Indication: PRODUCT USED FOR UNKNOWN INDICATION

REACTIONS (2)
  - Injection site rash [Not Recovered/Not Resolved]
  - Injection site erythema [Not Recovered/Not Resolved]
